FAERS Safety Report 5688190-4 (Version None)
Quarter: 2008Q1

REPORT INFORMATION
  Report Type: 
  Country: None (occurrence: None)
  Receive Date: 20080327
  Receipt Date: 20070515
  Transmission Date: 20080703
  Serious: Yes (Life-Threatening, Hospitalization, Disabling, Other)
  Sender: FDA-Public Use
  Company Number: 75719

PATIENT
  Age: 67 Year
  Sex: Male

DRUGS (4)
  1. IBUPROFEN [Suspect]
     Dosage: 400MG/ 1X A DAY/ORAL
     Route: 048
     Dates: start: 20070423, end: 20070428
  2. PARACETAMOL [Concomitant]
  3. SIMVASTATIN [Concomitant]
  4. TINZAPARIN [Concomitant]

REACTIONS (2)
  - GASTRIC HAEMORRHAGE [None]
  - KNEE ARTHROPLASTY [None]
